FAERS Safety Report 6415760-8 (Version None)
Quarter: 2009Q4

REPORT INFORMATION
  Report Type: 
  Country: None (occurrence: None)
  Receive Date: 20091022
  Receipt Date: 20091009
  Transmission Date: 20100525
  Serious: Yes (Life-Threatening)
  Sender: FDA-Public Use
  Company Number: 1-20376600

PATIENT
  Age: 60 Year
  Sex: Male

DRUGS (1)
  1. AMIODARONE HCL [Suspect]
     Indication: TACHYCARDIA
     Dosage: 150MG, THEN 1 MG/MIN, INTRAVEOUS
     Route: 042

REACTIONS (10)
  - ATRIAL FIBRILLATION [None]
  - CHILLS [None]
  - DIZZINESS [None]
  - ELECTROCARDIOGRAM PR SHORTENED [None]
  - ELECTROCARDIOGRAM QRS COMPLEX PROLONGED [None]
  - PALLOR [None]
  - PALPITATIONS [None]
  - TACHYCARDIA [None]
  - TORSADE DE POINTES [None]
  - VENTRICULAR EXTRASYSTOLES [None]
